FAERS Safety Report 6490614-X (Version None)
Quarter: 2009Q4

REPORT INFORMATION
  Report Type: 
  Country: None (occurrence: None)
  Receive Date: 20091211
  Receipt Date: 20091204
  Transmission Date: 20100525
  Serious: Yes (Death, Hospitalization)
  Sender: FDA-Public Use
  Company Number: US-SANOFI-AVENTIS-2009SA001287

PATIENT
  Age: 72 Year
  Sex: Male
  Weight: 136 kg

DRUGS (14)
  1. AMBIEN [Suspect]
     Indication: INSOMNIA
     Route: 048
     Dates: start: 20090101, end: 20091020
  2. UROXATRAL [Suspect]
     Indication: MICTURITION DISORDER
     Route: 048
     Dates: start: 20090301, end: 20091019
  3. LANTUS [Suspect]
     Dosage: DOSE:25 UNIT(S)
     Route: 058
     Dates: start: 20070101, end: 20091019
  4. FENTANYL [Suspect]
     Indication: NEUROPATHY PERIPHERAL
     Route: 062
     Dates: start: 20091017, end: 20091020
  5. METOPROLOL [Suspect]
     Indication: BLOOD PRESSURE
     Route: 048
     Dates: start: 20090801, end: 20090819
  6. ACETAMINOPHEN AND HYDROCODONE BITARTRATE [Suspect]
     Indication: PAIN
     Route: 048
     Dates: start: 20091017, end: 20091020
  7. DIPROLENE [Suspect]
     Indication: NEUROPATHY PERIPHERAL
     Route: 061
     Dates: start: 20091016, end: 20091016
  8. AMMONIUM LACTATE [Suspect]
     Indication: NEUROPATHY PERIPHERAL
     Route: 061
     Dates: start: 20091019, end: 20091019
  9. OXYCONTIN [Suspect]
     Indication: PAIN
     Route: 048
     Dates: start: 20030101, end: 20091016
  10. NOVOLOG [Suspect]
     Dosage: DOSE:15 UNIT(S)
     Route: 058
     Dates: start: 20070101, end: 20091019
  11. COUMADIN [Suspect]
     Dosage: 6 MG ONE DAY THEN 7.5 MG THE NEXT DAY, ALTERNATING DAYS
     Route: 048
     Dates: start: 20060101, end: 20091019
  12. COUMADIN [Suspect]
     Indication: PULMONARY EMBOLISM
     Dosage: 6 MG ONE DAY THEN 7.5 MG THE NEXT DAY, ALTERNATING DAYS
     Route: 048
     Dates: start: 20060101, end: 20091019
  13. CYMBALTA [Suspect]
     Indication: INSOMNIA
     Route: 048
     Dates: end: 20091019
  14. PLATELET AGGREGATION INHIBITORS [Concomitant]

REACTIONS (7)
  - APNOEA [None]
  - BRAIN INJURY [None]
  - COLD SWEAT [None]
  - FALL [None]
  - FEELING ABNORMAL [None]
  - HAEMORRHAGIC STROKE [None]
  - MALAISE [None]
